FAERS Safety Report 21107643 (Version 1)
Quarter: 2022Q3

REPORT INFORMATION
  Report Type: Spontaneous
  Country: GR (occurrence: GR)
  Receive Date: 20220720
  Receipt Date: 20220720
  Transmission Date: 20221026
  Serious: Yes (Other)
  Sender: FDA-Public Use
  Company Number: GR-PFIZER INC-PV202200017284

PATIENT
  Age: 57 Year
  Sex: Female

DRUGS (3)
  1. ATORVASTATIN CALCIUM [Suspect]
     Active Substance: ATORVASTATIN CALCIUM
     Indication: Acute coronary syndrome
     Dosage: 20 MG, 1X/DAY
  2. RIVAROXABAN [Suspect]
     Active Substance: RIVAROXABAN
     Indication: Acute coronary syndrome
     Dosage: 20 MG, 1X/DAY
  3. METOPROLOL [Suspect]
     Active Substance: METOPROLOL
     Indication: Acute coronary syndrome
     Dosage: 100 MG 1/4X3

REACTIONS (1)
  - Acute myocardial infarction [Unknown]
